FAERS Safety Report 15853041 (Version 1)
Quarter: 2018Q4

REPORT INFORMATION
  Report Type: Spontaneous
  Country: US (occurrence: US)
  Receive Date: 20181228
  Receipt Date: 20181228
  Transmission Date: 20190205
  Serious: No
  Sender: FDA-Public Use
  Company Number: None

PATIENT
  Age: 34 Year
  Sex: Female
  Weight: 70.31 kg

DRUGS (2)
  1. RASUVO [Suspect]
     Active Substance: METHOTREXATE SODIUM
     Indication: RHEUMATOID ARTHRITIS
     Dosage: INJECT 25 MG (0.5 ML) SUBCUTANELUSLY ONCE WEEKLY ON THE SAME DAY EQCH WEEK AS DIRECTED
     Route: 058
     Dates: start: 201811
  2. RASUVO [Suspect]
     Active Substance: METHOTREXATE SODIUM
     Indication: FIBROMYALGIA
     Dosage: INJECT 25 MG (0.5 ML) SUBCUTANELUSLY ONCE WEEKLY ON THE SAME DAY EQCH WEEK AS DIRECTED
     Route: 058
     Dates: start: 201811

REACTIONS (1)
  - Alopecia [None]
